FAERS Safety Report 11723086 (Version 4)
Quarter: 2016Q1

REPORT INFORMATION
  Report Type: Spontaneous
  Country: IL (occurrence: IL)
  Receive Date: 20151111
  Receipt Date: 20160309
  Transmission Date: 20160525
  Serious: Yes (Death, Hospitalization, Other)
  Sender: FDA-Public Use
  Company Number: IL-VERTEX PHARMACEUTICALS-2015-004952

PATIENT
  Age: 37 Year
  Sex: Male

DRUGS (1)
  1. KALYDECO [Suspect]
     Active Substance: IVACAFTOR
     Indication: CYSTIC FIBROSIS
     Dosage: UNK
     Route: 048
     Dates: start: 201504, end: 2015

REACTIONS (5)
  - Acute kidney injury [Unknown]
  - Drug ineffective [Unknown]
  - Intestinal obstruction [Unknown]
  - Respiratory failure [Fatal]
  - Infective pulmonary exacerbation of cystic fibrosis [Unknown]

NARRATIVE: CASE EVENT DATE: 201510
